FAERS Safety Report 5085154-9 (Version None)
Quarter: 2006Q3

REPORT INFORMATION
  Report Type: 
  Country: None (occurrence: None)
  Receive Date: 20060720
  Receipt Date: 20050521
  Transmission Date: 20061208
  Serious: Yes (Hospitalization, Other)
  Sender: FDA-Public Use
  Company Number: 2005068436

PATIENT
  Sex: Female
  Weight: 114.3065 kg

DRUGS (11)
  1. CELEBREX [Suspect]
     Indication: ARTHRITIS
     Dosage: (1 IN 1 D),ORAL
     Route: 048
  2. NEURONTIN [Suspect]
     Indication: NEURALGIA
     Dosage: 100 MG (100 MG,1 IN 1 D),ORAL
     Route: 048
     Dates: start: 20031101
  3. GABAPENTIN [Suspect]
     Indication: NEURALGIA
     Dosage: 200 MG (100 MG,2 IN 1 D),ORAL
     Route: 048
  4. BEXTRA [Suspect]
     Indication: ARTHRITIS
     Dosage: 10 MG (20 MG,1 IN 1 D),ORAL
     Route: 048
     Dates: start: 20040101
  5. VIOXX [Suspect]
     Indication: ARTHRITIS
     Dosage: (1 IN 1 D),ORAL
     Route: 048
  6. ACETYLSALICYLIC ACID ENTERIC COATED (ACETYLSALICYLIC ACID) [Suspect]
     Indication: CARDIAC DISORDER
     Dosage: 81 MG (81 MG,1 IN 1 D),ORAL
     Route: 048
  7. ATACAND HCT (CANDESARTAN CILEXETIL, HYDROCHLOROTHIAZIDE) [Concomitant]
  8. TOPROL-XL [Concomitant]
  9. PRILOSEC [Concomitant]
  10. XANAX [Concomitant]
  11. HYDROCODONE (HYDROCODONE) [Concomitant]

REACTIONS (6)
  - BODY HEIGHT DECREASED [None]
  - BURNING SENSATION [None]
  - DRUG INEFFECTIVE [None]
  - GASTROINTESTINAL ULCER [None]
  - MUSCLE SPASMS [None]
  - NEURALGIA [None]
